FAERS Safety Report 10261666 (Version 1)
Quarter: 2014Q2

REPORT INFORMATION
  Report Type: Report from Study
  Country: JP (occurrence: JP)
  Receive Date: 20140626
  Receipt Date: 20140626
  Transmission Date: 20141212
  Serious: Yes (Life-Threatening, Hospitalization)
  Sender: FDA-Public Use
  Company Number: JP-B.I. PHARMACEUTICALS,INC./RIDGEFIELD-2014-BI-28683NB

PATIENT
  Age: 51 Year
  Sex: Female
  Weight: 62.2 kg

DRUGS (12)
  1. TRAZENTA [Suspect]
     Indication: TYPE 2 DIABETES MELLITUS
     Dosage: 5 MG
     Route: 048
     Dates: start: 20130912, end: 20131102
  2. METGLUCO [Suspect]
     Indication: TYPE 2 DIABETES MELLITUS
     Dosage: 500 MG
     Route: 048
  3. NOVORAPID MIX [Suspect]
     Indication: TYPE 2 DIABETES MELLITUS
     Dosage: 10 U
     Route: 058
     Dates: end: 20130912
  4. MICARDIS [Concomitant]
     Dosage: 40 MG
     Route: 048
  5. AMLODIN OD [Concomitant]
     Dosage: 2.5 MG
     Route: 048
  6. LIPITOR [Concomitant]
     Dosage: 5 MG
     Route: 048
  7. MEILAX [Concomitant]
     Dosage: 2 MG
     Route: 048
  8. RESLIN [Concomitant]
     Dosage: 25 MG
     Route: 048
  9. LENDORMIN [Concomitant]
     Dosage: 0.25 MG
     Route: 048
  10. DEPAS [Concomitant]
     Dosage: 1 MG
     Route: 048
  11. SOLANAX [Concomitant]
     Dosage: 0.8 MG
     Route: 048
  12. DEPROMEL [Concomitant]
     Dosage: 100 MG
     Route: 048

REACTIONS (2)
  - Hypoglycaemic coma [Recovered/Resolved]
  - Depression [Unknown]
